FAERS Safety Report 8573407-9 (Version None)
Quarter: 2012Q3

REPORT INFORMATION
  Report Type: 
  Country: None (occurrence: None)
  Receive Date: 20120806
  Receipt Date: 20120725
  Transmission Date: 20120928
  Serious: Yes (Hospitalization, Other)
  Sender: FDA-Public Use
  Company Number: FR-BRISTOL-MYERS SQUIBB COMPANY-16807679

PATIENT
  Age: 77 Year
  Sex: Female

DRUGS (11)
  1. LASIX [Concomitant]
     Indication: HYPERTENSION
     Dosage: TAB
     Route: 048
  2. AMLODIPINE [Concomitant]
     Indication: HYPERTENSION
     Dosage: COVERAM 10MG/10MG TAB
     Route: 048
  3. TEGRETOL [Concomitant]
     Indication: DEMENTIA
     Dosage: SCORED TABLET
     Route: 048
     Dates: end: 20111107
  4. ATARAX [Concomitant]
     Dosage: TAB
     Route: 048
  5. BRICANYL [Concomitant]
     Indication: CHRONIC OBSTRUCTIVE PULMONARY DISEASE
     Route: 048
  6. ATROVENT [Concomitant]
     Indication: CHRONIC OBSTRUCTIVE PULMONARY DISEASE
     Route: 048
  7. ENALAPRIL MALEATE AND HYDROCHLOROTHIAZIDE [Concomitant]
     Indication: HYPERTENSION
     Route: 048
     Dates: end: 20111104
  8. COUMADIN [Suspect]
     Dosage: LONG-TERM THERAPY WITH THE LATTER ONE
     Dates: end: 20111104
  9. PERINDOPRIL ERBUMINE [Concomitant]
     Indication: HYPERTENSION
     Dosage: COVERAM 10MG/10MG TAB
     Route: 048
  10. NEXIUM [Concomitant]
     Indication: GASTROOESOPHAGEAL REFLUX DISEASE
     Dosage: TAB
     Route: 048
  11. CITALOPRAM HYDROBROMIDE [Concomitant]
     Indication: MENTAL DISORDER
     Dosage: TAB
     Route: 048
     Dates: end: 20111107

REACTIONS (3)
  - DIARRHOEA [None]
  - OVERDOSE [None]
  - CHRONIC OBSTRUCTIVE PULMONARY DISEASE [None]
